FAERS Safety Report 12052070 (Version 5)
Quarter: 2018Q1

REPORT INFORMATION
  Report Type: Spontaneous
  Country: AT (occurrence: AT)
  Receive Date: 20160209
  Receipt Date: 20180104
  Transmission Date: 20180508
  Serious: Yes (Hospitalization, Other)
  Sender: FDA-Public Use
  Company Number: AT-ASTRAZENECA-2016SE11389

PATIENT
  Age: 16 Year
  Sex: Female

DRUGS (41)
  1. SEROQUEL XR [Interacting]
     Active Substance: QUETIAPINE FUMARATE
     Indication: CHRONIC TIC DISORDER
     Route: 048
     Dates: end: 20151108
  2. SEROQUEL XR [Interacting]
     Active Substance: QUETIAPINE FUMARATE
     Indication: POST-TRAUMATIC STRESS DISORDER
     Route: 048
     Dates: start: 20151109
  3. SEROQUEL XR [Interacting]
     Active Substance: QUETIAPINE FUMARATE
     Indication: CHRONIC TIC DISORDER
     Route: 048
     Dates: start: 20151109
  4. TEMESTA EXP [Interacting]
     Active Substance: LORAZEPAM
     Indication: PRODUCT USED FOR UNKNOWN INDICATION
     Route: 042
     Dates: start: 20151105, end: 20151105
  5. TEMESTA EXP [Interacting]
     Active Substance: LORAZEPAM
     Indication: PRODUCT USED FOR UNKNOWN INDICATION
     Route: 048
     Dates: start: 20151112
  6. SEROQUEL XR [Interacting]
     Active Substance: QUETIAPINE FUMARATE
     Indication: POST-TRAUMATIC STRESS DISORDER
     Route: 048
     Dates: start: 20151109
  7. SEROQUEL XR [Interacting]
     Active Substance: QUETIAPINE FUMARATE
     Indication: POST-TRAUMATIC STRESS DISORDER
     Route: 048
     Dates: end: 20151108
  8. SEROQUEL XR [Interacting]
     Active Substance: QUETIAPINE FUMARATE
     Indication: POST-TRAUMATIC STRESS DISORDER
     Route: 048
     Dates: start: 20150909
  9. SEROQUEL XR [Interacting]
     Active Substance: QUETIAPINE FUMARATE
     Indication: PERSONALITY DISORDER
     Route: 048
     Dates: end: 20151108
  10. SEROQUEL XR [Interacting]
     Active Substance: QUETIAPINE FUMARATE
     Indication: PERSONALITY DISORDER
     Route: 048
     Dates: start: 20151109
  11. SEROQUEL XR [Interacting]
     Active Substance: QUETIAPINE FUMARATE
     Indication: POST-TRAUMATIC STRESS DISORDER
     Route: 048
     Dates: start: 20151109
  12. SEROQUEL XR [Interacting]
     Active Substance: QUETIAPINE FUMARATE
     Indication: URINARY RETENTION
     Dosage: 200.0MG UNKNOWN
     Route: 048
  13. TEMESTA EXP [Interacting]
     Active Substance: LORAZEPAM
     Indication: PRODUCT USED FOR UNKNOWN INDICATION
     Route: 042
     Dates: start: 20151108, end: 20151111
  14. DEPAKINE [Interacting]
     Active Substance: VALPROATE SODIUM
     Indication: PRODUCT USED FOR UNKNOWN INDICATION
     Route: 065
  15. SEROQUEL XR [Suspect]
     Active Substance: QUETIAPINE FUMARATE
     Indication: PERSONALITY DISORDER
     Route: 048
     Dates: end: 20151108
  16. SEROQUEL XR [Interacting]
     Active Substance: QUETIAPINE FUMARATE
     Indication: URINARY RETENTION
     Route: 048
     Dates: end: 20151108
  17. SEROQUEL XR [Interacting]
     Active Substance: QUETIAPINE FUMARATE
     Indication: CHRONIC TIC DISORDER
     Route: 048
     Dates: start: 20151109
  18. SEROQUEL XR [Interacting]
     Active Substance: QUETIAPINE FUMARATE
     Indication: URINARY RETENTION
     Route: 048
     Dates: end: 20151108
  19. SEROQUEL XR [Interacting]
     Active Substance: QUETIAPINE FUMARATE
     Indication: PERSONALITY DISORDER
     Route: 048
     Dates: start: 20150909
  20. SEROQUEL XR [Interacting]
     Active Substance: QUETIAPINE FUMARATE
     Indication: URINARY RETENTION
     Route: 048
     Dates: start: 20150909
  21. TEMESTA EXP [Interacting]
     Active Substance: LORAZEPAM
     Indication: PRODUCT USED FOR UNKNOWN INDICATION
     Route: 048
     Dates: start: 201507
  22. TEMESTA EXP [Interacting]
     Active Substance: LORAZEPAM
     Indication: PRODUCT USED FOR UNKNOWN INDICATION
     Route: 048
     Dates: start: 20151107, end: 20151107
  23. TRUXAL [Concomitant]
     Active Substance: CHLORPROTHIXENE
     Route: 065
  24. SEROQUEL XR [Interacting]
     Active Substance: QUETIAPINE FUMARATE
     Indication: PERSONALITY DISORDER
     Route: 048
     Dates: start: 20151109
  25. SEROQUEL XR [Interacting]
     Active Substance: QUETIAPINE FUMARATE
     Indication: CHRONIC TIC DISORDER
     Route: 048
     Dates: start: 20151109
  26. SEROQUEL XR [Interacting]
     Active Substance: QUETIAPINE FUMARATE
     Indication: CHRONIC TIC DISORDER
     Route: 048
     Dates: start: 20150909
  27. SEROQUEL XR [Interacting]
     Active Substance: QUETIAPINE FUMARATE
     Indication: PERSONALITY DISORDER
     Dosage: 200.0MG UNKNOWN
     Route: 048
  28. ABILIFY [Interacting]
     Active Substance: ARIPIPRAZOLE
     Indication: PRODUCT USED FOR UNKNOWN INDICATION
     Dosage: 15.0MG UNKNOWN
     Route: 048
     Dates: start: 20151105, end: 20151108
  29. SEROQUEL XR [Interacting]
     Active Substance: QUETIAPINE FUMARATE
     Indication: URINARY RETENTION
     Route: 048
     Dates: start: 20151109
  30. SEROQUEL XR [Interacting]
     Active Substance: QUETIAPINE FUMARATE
     Indication: CHRONIC TIC DISORDER
     Route: 048
     Dates: end: 20151108
  31. SEROQUEL XR [Interacting]
     Active Substance: QUETIAPINE FUMARATE
     Indication: URINARY RETENTION
     Route: 048
     Dates: start: 20151109
  32. SEROQUEL XR [Interacting]
     Active Substance: QUETIAPINE FUMARATE
     Indication: POST-TRAUMATIC STRESS DISORDER
     Dosage: 200.0MG UNKNOWN
     Route: 048
  33. SEROQUEL XR [Interacting]
     Active Substance: QUETIAPINE FUMARATE
     Indication: CHRONIC TIC DISORDER
     Dosage: 200.0MG UNKNOWN
     Route: 048
  34. ABILIFY [Interacting]
     Active Substance: ARIPIPRAZOLE
     Indication: PRODUCT USED FOR UNKNOWN INDICATION
     Dosage: 10.0MG UNKNOWN
     Route: 048
     Dates: start: 20151109, end: 20151111
  35. DEPAKINE [Interacting]
     Active Substance: VALPROATE SODIUM
     Indication: PRODUCT USED FOR UNKNOWN INDICATION
     Route: 065
     Dates: start: 20151108
  36. GEWACALM [Concomitant]
     Active Substance: DIAZEPAM
     Route: 065
  37. SEROQUEL XR [Interacting]
     Active Substance: QUETIAPINE FUMARATE
     Indication: POST-TRAUMATIC STRESS DISORDER
     Route: 048
     Dates: end: 20151108
  38. SEROQUEL XR [Interacting]
     Active Substance: QUETIAPINE FUMARATE
     Indication: URINARY RETENTION
     Route: 048
     Dates: start: 20151109
  39. SEROQUEL XR [Interacting]
     Active Substance: QUETIAPINE FUMARATE
     Indication: PERSONALITY DISORDER
     Route: 048
     Dates: start: 20151109
  40. NOZINAN [Interacting]
     Active Substance: LEVOMEPROMAZINE
     Indication: PRODUCT USED FOR UNKNOWN INDICATION
     Dosage: 50.0MG UNKNOWN
     Route: 065
     Dates: start: 20151106, end: 20151106
  41. NOZINAN [Interacting]
     Active Substance: LEVOMEPROMAZINE
     Indication: PRODUCT USED FOR UNKNOWN INDICATION
     Dosage: 150.0MG UNKNOWN
     Route: 065
     Dates: start: 20151107, end: 20151107

REACTIONS (6)
  - Micturition urgency [Unknown]
  - Drug interaction [Unknown]
  - Abdominal pain lower [Unknown]
  - Product use in unapproved indication [Unknown]
  - Urinary retention [Recovered/Resolved]
  - Off label use [Unknown]

NARRATIVE: CASE EVENT DATE: 20151108
